FAERS Safety Report 7808765-3 (Version None)
Quarter: 2011Q4

REPORT INFORMATION
  Report Type: 
  Country: None (occurrence: None)
  Receive Date: 20111012
  Receipt Date: 20110928
  Transmission Date: 20120403
  Serious: Yes (Other)
  Sender: FDA-Public Use
  Company Number: PHHY2010MX81083

PATIENT
  Sex: Male

DRUGS (2)
  1. EXFORGE [Suspect]
     Indication: HYPERTENSION
     Dosage: 1 DF (160/10 MG), DAILY
     Route: 048
     Dates: start: 20101030
  2. EXFORGE [Suspect]
     Dosage: 1 DF (320/10 MG), DAILY
     Dates: start: 20101126

REACTIONS (7)
  - DYSPEPSIA [None]
  - CONSTIPATION [None]
  - BLOOD PRESSURE INCREASED [None]
  - ABDOMINAL PAIN [None]
  - GASTRITIS [None]
  - ABDOMINAL DISCOMFORT [None]
  - COUGH [None]
